FAERS Safety Report 10335140 (Version 1)
Quarter: 2014Q3

REPORT INFORMATION
  Report Type: Spontaneous
  Country: US (occurrence: None)
  Receive Date: 20140722
  Receipt Date: 20140722
  Transmission Date: 20150326
  Serious: Yes (Disabling, Other)
  Sender: FDA-Public Use
  Company Number: None

PATIENT
  Age: 29 Year
  Sex: Female
  Weight: 120.2 kg

DRUGS (1)
  1. COPAXONE [Suspect]
     Active Substance: GLATIRAMER ACETATE
     Indication: RELAPSING-REMITTING MULTIPLE SCLEROSIS
     Dosage: 20ML?ONCE DAILY?GIVEN INTO/UNDER THE SKIN

REACTIONS (5)
  - Migraine [None]
  - Alopecia [None]
  - Speech disorder [None]
  - Malaise [None]
  - Pain [None]

NARRATIVE: CASE EVENT DATE: 20140305
